FAERS Safety Report 7117424-4 (Version None)
Quarter: 2010Q4

REPORT INFORMATION
  Report Type: 
  Country: None (occurrence: None)
  Receive Date: 20101122
  Receipt Date: 20101112
  Transmission Date: 20110411
  Serious: Yes (Other)
  Sender: FDA-Public Use
  Company Number: US-PFIZER INC-2010122706

PATIENT
  Sex: Female
  Weight: 68.492 kg

DRUGS (5)
  1. LYRICA [Suspect]
     Indication: MIGRAINE
     Dosage: UNK MG, 3X/DAY
     Route: 048
  2. LYRICA [Suspect]
     Dosage: 150 MG, 3X/DAY
     Route: 048
     Dates: start: 20051101
  3. ESTRADIOL [Concomitant]
     Indication: HORMONE REPLACEMENT THERAPY
     Dosage: 2 MG, 1X/DAY
     Route: 048
  4. ESTRADIOL [Concomitant]
     Dosage: 2 MG, DAILY
  5. MULTI-VITAMINS [Concomitant]
     Dosage: UNK
     Route: 048

REACTIONS (20)
  - BONE PAIN [None]
  - CONSTIPATION [None]
  - CRYING [None]
  - DECREASED APPETITE [None]
  - DEPRESSION [None]
  - DRUG INEFFECTIVE [None]
  - DRY MOUTH [None]
  - FACIAL PAIN [None]
  - FEELING JITTERY [None]
  - HALLUCINATION [None]
  - HYPERSENSITIVITY [None]
  - HYPERTENSION [None]
  - INFLAMMATION [None]
  - INSOMNIA [None]
  - MENTAL DISORDER [None]
  - NERVOUSNESS [None]
  - PANIC REACTION [None]
  - PARAESTHESIA [None]
  - PRURITUS GENERALISED [None]
  - SOMNOLENCE [None]
